APPROVED DRUG PRODUCT: AFRINOL
Active Ingredient: PSEUDOEPHEDRINE SULFATE
Strength: 120MG
Dosage Form/Route: TABLET, EXTENDED RELEASE;ORAL
Application: N018191 | Product #001
Applicant: SCHERING PLOUGH HEALTHCARE PRODUCTS INC
Approved: Approved Prior to Jan 1, 1982 | RLD: Yes | RS: No | Type: DISCN